FAERS Safety Report 5257968-3 (Version None)
Quarter: 2007Q1

REPORT INFORMATION
  Report Type: 
  Country: None (occurrence: None)
  Receive Date: 20070307
  Receipt Date: 20061115
  Transmission Date: 20070707
  Serious: No
  Sender: FDA-Public Use
  Company Number: US-GLAXOSMITHKLINE-A0627663A

PATIENT
  Age: 31 Year
  Sex: Female

DRUGS (2)
  1. REQUIP [Suspect]
     Indication: DRUG USE FOR UNKNOWN INDICATION
     Dosage: 1MG AT NIGHT
     Route: 048
  2. NONE [Concomitant]

REACTIONS (2)
  - AMENORRHOEA [None]
  - MENSTRUAL DISORDER [None]
